FAERS Safety Report 19087601 (Version 1)
Quarter: 2021Q2

REPORT INFORMATION
  Report Type: Spontaneous
  Country: SA (occurrence: SA)
  Receive Date: 20210402
  Receipt Date: 20210402
  Transmission Date: 20210717
  Serious: Yes (Death, Other)
  Sender: FDA-Public Use
  Company Number: SA-FRESENIUS KABI-FK202103395

PATIENT
  Age: 31 Year
  Sex: Male

DRUGS (4)
  1. PIPERACILLIN SODIUM/TAZOBACTAM SODIUM [Concomitant]
     Active Substance: PIPERACILLIN SODIUM\TAZOBACTAM SODIUM
     Indication: DRUG THERAPY
     Route: 065
  2. COLISTIMETHATE (MANUFACTURER UNKNOWN) [Suspect]
     Active Substance: COLISTIMETHATE SODIUM
     Indication: DRUG THERAPY
     Route: 065
  3. VANCOMYCIN [Concomitant]
     Active Substance: VANCOMYCIN
     Indication: DRUG THERAPY
     Route: 065
  4. MEROPENEM (MANUFACTURER UNKNOWN) [Suspect]
     Active Substance: MEROPENEM
     Indication: DRUG THERAPY
     Route: 065

REACTIONS (6)
  - Sepsis [Unknown]
  - Abdominal abscess [Recovered/Resolved]
  - Treatment failure [Fatal]
  - Acute abdomen [Recovered/Resolved]
  - Cardiac arrest [Fatal]
  - Status epilepticus [Unknown]
